FAERS Safety Report 21826465 (Version 1)
Quarter: 2023Q1

REPORT INFORMATION
  Report Type: Spontaneous
  Country: US (occurrence: US)
  Receive Date: 20230106
  Receipt Date: 20230106
  Transmission Date: 20230418
  Serious: No
  Sender: FDA-Public Use
  Company Number: US-ELI_LILLY_AND_COMPANY-US202301000876

PATIENT
  Sex: Male

DRUGS (8)
  1. LYUMJEV KWIKPEN [Suspect]
     Active Substance: INSULIN LISPRO
     Indication: Type 1 diabetes mellitus
     Dosage: 6 U, OTHER (BEFORE BREAKFAST AND LUNCH)
     Route: 065
  2. LYUMJEV KWIKPEN [Suspect]
     Active Substance: INSULIN LISPRO
     Indication: Type 1 diabetes mellitus
     Dosage: 6 U, OTHER (BEFORE BREAKFAST AND LUNCH)
     Route: 065
  3. LYUMJEV KWIKPEN [Suspect]
     Active Substance: INSULIN LISPRO
     Dosage: 5 U, OTHER (BEFORE BED)
     Route: 065
  4. LYUMJEV KWIKPEN [Suspect]
     Active Substance: INSULIN LISPRO
     Dosage: 5 U, OTHER (BEFORE BED)
     Route: 065
  5. LYUMJEV KWIKPEN [Suspect]
     Active Substance: INSULIN LISPRO
     Dosage: 6 U, OTHER (BEFORE BREAKFAST AND LUNCH)
     Route: 065
  6. LYUMJEV KWIKPEN [Suspect]
     Active Substance: INSULIN LISPRO
     Dosage: 6 U, OTHER (BEFORE BREAKFAST AND LUNCH)
     Route: 065
  7. LYUMJEV KWIKPEN [Suspect]
     Active Substance: INSULIN LISPRO
     Dosage: 5 U, OTHER (BEFORE BED)
     Route: 065
  8. LYUMJEV KWIKPEN [Suspect]
     Active Substance: INSULIN LISPRO
     Dosage: 5 U, OTHER (BEFORE BED)
     Route: 065

REACTIONS (2)
  - Hypoacusis [Unknown]
  - Blood glucose increased [Unknown]
